FAERS Safety Report 5746989-X (Version None)
Quarter: 2008Q2

REPORT INFORMATION
  Report Type: 
  Country: None (occurrence: None)
  Receive Date: 20080522
  Receipt Date: 20080512
  Transmission Date: 20081010
  Serious: Yes (Hospitalization)
  Sender: FDA-Public Use
  Company Number: FR-PFIZER INC-2008041320

PATIENT
  Age: 83 Year
  Sex: Female

DRUGS (8)
  1. ALDACTONE [Suspect]
     Indication: HYPERTENSION
     Route: 048
  2. COZAAR [Suspect]
     Indication: HYPERTENSION
     Dosage: TEXT:1 DF
     Route: 048
  3. NEXIUM [Suspect]
     Dosage: TEXT:1 DF
     Route: 048
  4. ZOCOR [Suspect]
     Indication: HYPERCHOLESTEROLAEMIA
     Route: 048
  5. LASILIX [Suspect]
     Indication: HYPERTENSION
     Route: 048
  6. LEVOTHYROXINE SODIUM [Suspect]
     Indication: HYPOTHYROIDISM
     Route: 048
  7. CORDARONE [Suspect]
     Indication: ATRIAL FIBRILLATION
     Dosage: TEXT:1 DF
     Route: 048
  8. EQUANIL [Suspect]
     Indication: INSOMNIA
     Route: 048

REACTIONS (3)
  - OEDEMA [None]
  - RASH [None]
  - TOXIC SKIN ERUPTION [None]
